FAERS Safety Report 11649694 (Version 1)
Quarter: 2015Q4

REPORT INFORMATION
  Report Type: Spontaneous
  Country: US (occurrence: US)
  Receive Date: 20151021
  Receipt Date: 20151021
  Transmission Date: 20160304
  Serious: Yes (Hospitalization, Other)
  Sender: FDA-Public Use
  Company Number: US-PFIZER INC-2015350121

PATIENT
  Age: 47 Year
  Sex: Male

DRUGS (16)
  1. LISINOPRIL HCTZ [Concomitant]
     Active Substance: HYDROCHLOROTHIAZIDE\LISINOPRIL
     Indication: BLOOD PRESSURE ABNORMAL
     Dosage: 1 DF, [LISINOPRIL, 20MG]/ [HCTZ, 25MG], 1X/DAY
     Route: 048
  2. GABAPENTIN. [Suspect]
     Active Substance: GABAPENTIN
     Indication: NEUROPATHY PERIPHERAL
     Dosage: 600 MG, 3X/DAY
     Route: 048
     Dates: start: 2012, end: 201507
  3. CLONIDINE HCL [Concomitant]
     Active Substance: CLONIDINE HYDROCHLORIDE
     Indication: BLOOD PRESSURE ABNORMAL
     Dosage: 0.015 MG, 2X/DAY (.03MG TABLET, HALF A TABLET BY MOUTH TWICE A DAY)
     Route: 048
  4. GABAPENTIN. [Suspect]
     Active Substance: GABAPENTIN
     Indication: BURNING SENSATION
  5. GABAPENTIN. [Suspect]
     Active Substance: GABAPENTIN
     Indication: PAIN
  6. AMLODIPINE BESYLATE. [Concomitant]
     Active Substance: AMLODIPINE BESYLATE
     Indication: BLOOD PRESSURE ABNORMAL
     Dosage: 10 MG, 1X/DAY
     Route: 048
  7. HUMALOG [Concomitant]
     Active Substance: INSULIN LISPRO
     Indication: DIABETES MELLITUS
     Dosage: 37 IU, 3X/DAY (HUMALOG 37UNITS SUBCUTANEOUS, PER MEAL AND AS A SLIDING SCALE 3 TIMES A DAY)
     Route: 058
  8. NASACORT [Concomitant]
     Active Substance: TRIAMCINOLONE ACETONIDE
     Indication: ALLERGY TO ANIMAL
     Dosage: DAILY, TWO SPRAYS IN EACH NOSTRIL
  9. GABAPENTIN. [Suspect]
     Active Substance: GABAPENTIN
     Indication: HYPOAESTHESIA
  10. JARDIANCE [Concomitant]
     Active Substance: EMPAGLIFLOZIN
     Indication: DIABETES MELLITUS
     Dosage: 25 MG, 1X/DAY
     Route: 048
  11. LANTUS [Concomitant]
     Active Substance: INSULIN GLARGINE
     Indication: DIABETES MELLITUS
     Dosage: 86 IU, DAILY
     Route: 058
  12. CELEBREX [Suspect]
     Active Substance: CELECOXIB
     Indication: ARTHRITIS
     Dosage: EITHER A 200MG OR 250MG CAPSULE, 1X/DAY
  13. LYRICA [Suspect]
     Active Substance: PREGABALIN
     Dosage: UNK
  14. VIAGRA [Suspect]
     Active Substance: SILDENAFIL CITRATE
     Dosage: UNK
  15. KETOROLAC [Concomitant]
     Active Substance: KETOROLAC\KETOROLAC TROMETHAMINE
     Indication: MIGRAINE
     Dosage: 10 MG, (EVERY 6 HOURS UP TO 5 TIMES A DAY AS NEEDED)
     Route: 048
  16. NASACORT [Concomitant]
     Active Substance: TRIAMCINOLONE ACETONIDE
     Indication: SEASONAL ALLERGY

REACTIONS (12)
  - Blister [Unknown]
  - Skin injury [Unknown]
  - Road traffic accident [Unknown]
  - Pain in extremity [Unknown]
  - Wound infection [Unknown]
  - Bone disorder [Unknown]
  - Pain [Unknown]
  - Back disorder [Unknown]
  - Foot fracture [Unknown]
  - Product use issue [Unknown]
  - Gait disturbance [Unknown]
  - Scar [Unknown]

NARRATIVE: CASE EVENT DATE: 2012
